FAERS Safety Report 8063044-7 (Version None)
Quarter: 2012Q1

REPORT INFORMATION
  Report Type: 
  Country: None (occurrence: None)
  Receive Date: 20120123
  Receipt Date: 20120117
  Transmission Date: 20120608
  Serious: Yes (Hospitalization)
  Sender: FDA-Public Use
  Company Number: DE-ROCHE-1031745

PATIENT
  Sex: Female
  Weight: 76 kg

DRUGS (4)
  1. ACETYLSALICYLIC ACID SRT [Concomitant]
  2. XELODA [Suspect]
     Indication: RECTAL CANCER
     Route: 048
     Dates: start: 20111011, end: 20111024
  3. METOPROLOL SUCCINATE [Concomitant]
  4. TORSEMIDE [Concomitant]

REACTIONS (7)
  - DIARRHOEA [None]
  - CYSTITIS [None]
  - GENERAL PHYSICAL HEALTH DETERIORATION [None]
  - MUCOSAL INFLAMMATION [None]
  - PANCYTOPENIA [None]
  - FALL [None]
  - ASTHENIA [None]
